FAERS Safety Report 17438302 (Version 5)
Quarter: 2023Q2

REPORT INFORMATION
  Report Type: Other
  Country: US (occurrence: None)
  Receive Date: 20200220
  Receipt Date: 20230607
  Transmission Date: 20230721
  Serious: Yes (Hospitalization, Other)
  Sender: FDA-Public Use
  Company Number: US-ROCHE-2531596

PATIENT
  Age: 32 Year
  Sex: Female

DRUGS (2)
  1. CELLCEPT [Suspect]
     Active Substance: MYCOPHENOLATE MOFETIL
     Indication: Systemic lupus erythematosus
     Dosage: 3 TABLETS TWO TIMES A DAY
     Route: 065
  2. CELLCEPT [Suspect]
     Active Substance: MYCOPHENOLATE MOFETIL
     Indication: Systemic lupus erythematosus
     Route: 048

REACTIONS (12)
  - Lupus encephalitis [Unknown]
  - Cutaneous lupus erythematosus [Unknown]
  - Condition aggravated [Unknown]
  - Neuropsychiatric lupus [Unknown]
  - Malaise [Not Recovered/Not Resolved]
  - Gait disturbance [Unknown]
  - Memory impairment [Unknown]
  - Dizziness [Unknown]
  - Drug ineffective [Unknown]
  - Feeling abnormal [Unknown]
  - Product prescribing error [Unknown]
  - Off label use [Unknown]
